FAERS Safety Report 5392826-5 (Version None)
Quarter: 2007Q3

REPORT INFORMATION
  Report Type: 
  Country: None (occurrence: None)
  Receive Date: 20070720
  Receipt Date: 20070710
  Transmission Date: 20080115
  Serious: Yes (Hospitalization)
  Sender: FDA-Public Use
  Company Number: FR-PFIZER INC-2007056753

PATIENT
  Age: 48 Year
  Sex: Female

DRUGS (1)
  1. ZITHROMAX [Suspect]
     Indication: PHARYNGOLARYNGEAL PAIN
     Dosage: TEXT:2 DF
     Route: 048
     Dates: start: 20070512, end: 20070514

REACTIONS (1)
  - SERUM SICKNESS [None]
